FAERS Safety Report 23063408 (Version 2)
Quarter: 2023Q4

REPORT INFORMATION
  Report Type: Report from Study
  Country: KR (occurrence: KR)
  Receive Date: 20231013
  Receipt Date: 20231109
  Transmission Date: 20240110
  Serious: Yes (Hospitalization)
  Sender: FDA-Public Use
  Company Number: KR-Eisai Medical Research-EC-2023-142882

PATIENT
  Age: 71 Year
  Sex: Female
  Weight: 72.6 kg

DRUGS (8)
  1. E-7386 [Suspect]
     Active Substance: E-7386
     Indication: Endometrial cancer
     Route: 048
     Dates: start: 20230609, end: 20230609
  2. E-7386 [Suspect]
     Active Substance: E-7386
     Route: 048
     Dates: start: 20230610, end: 20230610
  3. E-7386 [Suspect]
     Active Substance: E-7386
     Route: 048
     Dates: start: 20230619, end: 20230817
  4. LENVATINIB [Suspect]
     Active Substance: LENVATINIB
     Indication: Endometrial cancer
     Route: 048
     Dates: start: 20230609, end: 20230610
  5. LENVATINIB [Suspect]
     Active Substance: LENVATINIB
     Route: 048
     Dates: start: 20230619, end: 20230619
  6. LENVATINIB [Suspect]
     Active Substance: LENVATINIB
     Route: 048
     Dates: start: 20230622, end: 20230622
  7. LENVATINIB [Suspect]
     Active Substance: LENVATINIB
     Route: 048
     Dates: start: 20230710, end: 20230715
  8. LENVATINIB [Suspect]
     Active Substance: LENVATINIB
     Route: 048
     Dates: start: 20230803, end: 20230817

REACTIONS (2)
  - Nausea [Recovered/Resolved]
  - Oropharyngeal pain [Recovered/Resolved]

NARRATIVE: CASE EVENT DATE: 20230609
